FAERS Safety Report 14700654 (Version 1)
Quarter: 2018Q1

REPORT INFORMATION
  Report Type: Spontaneous
  Country: FR (occurrence: FR)
  Receive Date: 20180330
  Receipt Date: 20180330
  Transmission Date: 20180509
  Serious: Yes (Hospitalization)
  Sender: FDA-Public Use
  Company Number: FR-SA-2018SA090919

PATIENT
  Age: 44 Year
  Sex: Male

DRUGS (4)
  1. RIFADINE [Suspect]
     Active Substance: RIFAMPIN
     Indication: ENDOCARDITIS STAPHYLOCOCCAL
     Route: 048
     Dates: start: 20180224, end: 20180308
  2. GENTAMICIN. [Concomitant]
     Active Substance: GENTAMICIN
     Route: 065
  3. METHADONE [Suspect]
     Active Substance: METHADONE HYDROCHLORIDE
     Indication: PRODUCT SUBSTITUTION
     Route: 048
     Dates: start: 2016
  4. CEFAZOLINE [Concomitant]
     Active Substance: CEFAZOLIN SODIUM
     Route: 065

REACTIONS (2)
  - Overdose [Unknown]
  - Electrocardiogram QT prolonged [Recovering/Resolving]

NARRATIVE: CASE EVENT DATE: 20180308
